FAERS Safety Report 4628598-9 (Version None)
Quarter: 2005Q2

REPORT INFORMATION
  Report Type: 
  Country: None (occurrence: None)
  Receive Date: 20050404
  Receipt Date: 20050318
  Transmission Date: 20051028
  Serious: Yes (Hospitalization)
  Sender: FDA-Public Use
  Company Number: 106243ISR

PATIENT
  Age: 48 Year
  Sex: Male

DRUGS (5)
  1. ETOPOSIDE [Suspect]
     Indication: LUNG NEOPLASM MALIGNANT
     Dosage: 100 MG/M2 INTRAVENOUS (NOS)
     Route: 042
     Dates: end: 20050209
  2. CYCLOPHOSPHAMIDE [Suspect]
     Indication: LUNG NEOPLASM MALIGNANT
     Dosage: 400 MG/M2, INTRAVENOUS (NOS)
     Route: 042
     Dates: end: 20050209
  3. EPIRUBICIN [Suspect]
     Indication: LUNG NEOPLASM MALIGNANT
     Dosage: 40 MG/M2, INTRAVENOUS (NOS)
     Route: 042
     Dates: end: 20050207
  4. CISPLATIN [Suspect]
     Indication: LUNG NEOPLASM MALIGNANT
     Dosage: 100 MG/M2 INTRAVENOUS (NOS)
     Route: 042
     Dates: end: 20050208
  5. PREDNISONE [Suspect]
     Indication: BRAIN OEDEMA
     Dosage: ORAL
     Route: 048
     Dates: start: 20041201

REACTIONS (5)
  - CRYPTOGENIC ORGANIZING PNEUMONIA [None]
  - LUNG INFILTRATION [None]
  - PULMONARY HYPERTENSION [None]
  - PULMONARY VENO-OCCLUSIVE DISEASE [None]
  - VIRAL INFECTION [None]
